FAERS Safety Report 19094195 (Version 3)
Quarter: 2021Q2

REPORT INFORMATION
  Report Type: Report from Study
  Country: JP (occurrence: JP)
  Receive Date: 20210405
  Receipt Date: 20210510
  Transmission Date: 20210717
  Serious: Yes (Death, Other)
  Sender: FDA-Public Use
  Company Number: JP-AMGEN-JPNSP2021050838

PATIENT
  Age: 79 Year
  Sex: Female

DRUGS (8)
  1. ROMIPLOSTIM [Suspect]
     Active Substance: ROMIPLOSTIM
     Dosage: 750 MICROGRAM, QWK
     Route: 058
     Dates: start: 20190927, end: 20191011
  2. ROMIPLOSTIM [Suspect]
     Active Substance: ROMIPLOSTIM
     Dosage: 750 MICROGRAM, QWK
     Route: 058
     Dates: start: 20191018, end: 20191115
  3. NORVASC [Concomitant]
     Active Substance: AMLODIPINE BESYLATE
     Indication: HYPERTENSION
     Dosage: 2.5 MG, QD
     Route: 048
  4. ROMIPLOSTIM [Suspect]
     Active Substance: ROMIPLOSTIM
     Dosage: 950 MICROGRAM, QWK
     Route: 058
     Dates: start: 20191213, end: 20200626
  5. JADENU [Concomitant]
     Active Substance: DEFERASIROX
     Indication: APLASTIC ANAEMIA
     Dosage: 360 MG, QD
     Route: 048
  6. ROMIPLOSTIM [Suspect]
     Active Substance: ROMIPLOSTIM
     Indication: APLASTIC ANAEMIA
     Dosage: 400 MICROGRAM, QWK
     Route: 058
     Dates: start: 20190913, end: 20190920
  7. ALINAMIN F [Concomitant]
     Active Substance: FURSULTIAMINE HYDROCHLORIDE
     Indication: VITAMIN B1 DECREASED
     Dosage: 25 MG, QD
     Route: 048
  8. ROMIPLOSTIM [Suspect]
     Active Substance: ROMIPLOSTIM
     Dosage: 750 MICROGRAM, QWK
     Route: 058
     Dates: start: 20191129, end: 20191206

REACTIONS (1)
  - Renal failure [Fatal]
